FAERS Safety Report 5450888-0 (Version None)
Quarter: 2007Q3

REPORT INFORMATION
  Report Type: 
  Country: None (occurrence: None)
  Receive Date: 20070911
  Receipt Date: 20070830
  Transmission Date: 20080115
  Serious: Yes (Other)
  Sender: FDA-Public Use
  Company Number: 2007BI018739

PATIENT
  Age: 53 Year
  Sex: Female

DRUGS (13)
  1. NATALIZUMAB [Suspect]
     Indication: MULTIPLE SCLEROSIS
     Dosage: IV
     Route: 042
     Dates: start: 20070515, end: 20070813
  2. FISH OIL [Concomitant]
  3. LEXAPRO [Concomitant]
  4. BACLOFEN [Concomitant]
  5. PROVIGIL [Concomitant]
  6. NEXIUM [Concomitant]
  7. FOSAMAX [Concomitant]
  8. PREDNISOLONE-SODIUM SULFACETAMIDE 0.25% SODIUM [Concomitant]
  9. PHOSPHATE 10% [Concomitant]
  10. ASCORBIC ACID [Concomitant]
  11. GLUCOSAMINE [Concomitant]
  12. CALCIUM AND VITAMIN D COMBINATION [Concomitant]
  13. VITAMIN E [Concomitant]

REACTIONS (15)
  - ABDOMINAL DISCOMFORT [None]
  - ANXIETY [None]
  - CARDIO-RESPIRATORY ARREST [None]
  - CHILLS [None]
  - DEPRESSION [None]
  - DYSURIA [None]
  - FATIGUE [None]
  - GAIT DISTURBANCE [None]
  - HEADACHE [None]
  - LIBIDO DECREASED [None]
  - LOSS OF CONSCIOUSNESS [None]
  - MUSCLE SPASTICITY [None]
  - NAUSEA [None]
  - SYNCOPE [None]
  - VISION BLURRED [None]
